FAERS Safety Report 6017276-X (Version None)
Quarter: 2008Q4

REPORT INFORMATION
  Report Type: 
  Country: None (occurrence: None)
  Receive Date: 20081223
  Receipt Date: 20081217
  Transmission Date: 20090506
  Serious: Yes (Death, Hospitalization, Other)
  Sender: FDA-Public Use
  Company Number: US-ASTRAZENECA-2008UW24255

PATIENT
  Age: 82 Year
  Sex: Female
  Weight: 70.8 kg

DRUGS (11)
  1. SEROQUEL [Suspect]
     Indication: DEMENTIA
     Dosage: 200 MG DAILY-1000 MG DAILY
     Route: 048
     Dates: start: 20060105, end: 20061001
  2. SEROQUEL [Suspect]
     Indication: SLEEP DISORDER
     Dosage: 200 MG DAILY-1000 MG DAILY
     Route: 048
     Dates: start: 20060105, end: 20061001
  3. SEROQUEL [Suspect]
     Route: 048
  4. SEROQUEL [Suspect]
     Route: 048
  5. TRAZODONE HCL [Concomitant]
  6. HYDROCODONE BITARTRATE [Concomitant]
  7. NORVASC [Concomitant]
  8. VALIUM [Concomitant]
  9. LORTAB [Concomitant]
  10. VITAMIN D [Concomitant]
  11. BONIVA [Concomitant]

REACTIONS (6)
  - CEREBROVASCULAR ACCIDENT [None]
  - DEATH [None]
  - DYSPHAGIA [None]
  - EMOTIONAL DISORDER [None]
  - NEUROLEPTIC MALIGNANT SYNDROME [None]
  - NONSPECIFIC REACTION [None]
